FAERS Safety Report 25115881 (Version 2)
Quarter: 2025Q1

REPORT INFORMATION
  Report Type: Spontaneous
  Country: PL (occurrence: PL)
  Receive Date: 20250325
  Receipt Date: 20250330
  Transmission Date: 20250409
  Serious: Yes (Life-Threatening)
  Sender: CSL BEHRING
  Company Number: PL-BEH-2025199726

PATIENT
  Sex: Female

DRUGS (6)
  1. PRIVIGEN [Suspect]
     Active Substance: HUMAN IMMUNOGLOBULIN G
     Indication: Encephalitis
     Route: 065
  2. TIMONACIC [Concomitant]
     Active Substance: TIMONACIC
  3. URSODIOL [Concomitant]
     Active Substance: URSODIOL
  4. LEVOTHYROXINE [Concomitant]
     Active Substance: LEVOTHYROXINE
  5. ATORVASTATIN [Concomitant]
     Active Substance: ATORVASTATIN
  6. Vitaminum d3 [Concomitant]

REACTIONS (4)
  - Urticaria [Recovered/Resolved]
  - Dyspnoea [Recovered/Resolved]
  - Cough [Recovered/Resolved]
  - Off label use [Unknown]

NARRATIVE: CASE EVENT DATE: 20250221
